FAERS Safety Report 11608206 (Version 1)
Quarter: 2015Q4

REPORT INFORMATION
  Report Type: Spontaneous
  Country: SE (occurrence: SE)
  Receive Date: 20151007
  Receipt Date: 20151007
  Transmission Date: 20160304
  Serious: Yes (Death, Hospitalization, Other)
  Sender: FDA-Public Use
  Company Number: SE-PFIZER INC-2015331444

PATIENT
  Age: 73 Year
  Sex: Male

DRUGS (5)
  1. GABAPENTIN TEVA [Concomitant]
     Active Substance: GABAPENTIN
     Dosage: 300 MG, UNK
  2. NICOTINELL [Concomitant]
     Active Substance: NICOTINE
     Dosage: 21 MG/ 24 HOURS
  3. COMBIVENT [Concomitant]
     Active Substance: ALBUTEROL SULFATE\IPRATROPIUM BROMIDE
     Dosage: UNK
  4. DIGOXIN BIOPHAUSIA [Concomitant]
     Dosage: UNK
  5. DALACIN [Suspect]
     Active Substance: CLINDAMYCIN\CLINDAMYCIN PHOSPHATE
     Indication: ERYSIPELAS
     Dosage: 300 MG, 3X/DAY
     Dates: start: 20150622, end: 20150702

REACTIONS (3)
  - Multi-organ failure [Fatal]
  - Clostridium difficile colitis [Fatal]
  - Coagulopathy [Fatal]

NARRATIVE: CASE EVENT DATE: 2015
